FAERS Safety Report 5648724-2 (Version None)
Quarter: 2008Q1

REPORT INFORMATION
  Report Type: 
  Country: None (occurrence: None)
  Receive Date: 20080303
  Receipt Date: 20080303
  Transmission Date: 20080703
  Serious: Yes (Other)
  Sender: FDA-Public Use
  Company Number: None

PATIENT
  Age: 69 Year
  Sex: Female
  Weight: 68.0396 kg

DRUGS (1)
  1. AMLODIPINE MALEATE/ BENAZEPRIL HYDROCHLORIDE [Suspect]
     Indication: HYPERTENSION
     Dosage: 5-10 1 PER DAY
     Dates: start: 20071016, end: 20071030

REACTIONS (2)
  - FATIGUE [None]
  - PHARMACEUTICAL PRODUCT COMPLAINT [None]
